FAERS Safety Report 5168823-1 (Version None)
Quarter: 2006Q4

REPORT INFORMATION
  Report Type: 
  Country: None (occurrence: None)
  Receive Date: 20061201
  Receipt Date: 20061117
  Transmission Date: 20070319
  Serious: Yes (Other)
  Sender: FDA-Public Use
  Company Number: 2006SP006850

PATIENT
  Age: 41 Year
  Sex: Male

DRUGS (5)
  1. PEG-INTRON [Suspect]
     Indication: HEPATITIS C
     Dosage: SC
     Route: 058
     Dates: start: 20060623
  2. RIBAVIRIN [Suspect]
     Indication: HEPATITIS C
     Dosage: PO
     Route: 048
     Dates: start: 20060623
  3. HEMATINIC [Concomitant]
  4. ZOLOFT [Concomitant]
  5. CYMBALTA [Concomitant]

REACTIONS (6)
  - AGGRESSION [None]
  - ANGER [None]
  - DEHYDRATION [None]
  - IRRITABILITY [None]
  - STOMACH DISCOMFORT [None]
  - VOMITING [None]
